FAERS Safety Report 5022976-4 (Version None)
Quarter: 2006Q2

REPORT INFORMATION
  Report Type: 
  Country: None (occurrence: None)
  Receive Date: 20060426
  Receipt Date: 20060106
  Transmission Date: 20061013
  Serious: Yes (Other)
  Sender: FDA-Public Use
  Company Number: 2006004717

PATIENT
  Age: 65 Year
  Sex: Female

DRUGS (7)
  1. LYRICA [Suspect]
     Indication: NEURALGIA
     Dosage: 150 MG (75 MG, 2 IN 1 D)
     Dates: start: 20050101
  2. DETROL [Concomitant]
  3. BACLOFEN [Concomitant]
  4. SYNTHROID [Concomitant]
  5. ATACAND [Concomitant]
  6. PREVACID [Concomitant]
  7. ZOCOR [Concomitant]

REACTIONS (2)
  - THERAPEUTIC RESPONSE DECREASED [None]
  - WEIGHT INCREASED [None]
